FAERS Safety Report 5742146-1 (Version None)
Quarter: 2008Q2

REPORT INFORMATION
  Report Type: 
  Country: None (occurrence: None)
  Receive Date: 20080515
  Receipt Date: 20080503
  Transmission Date: 20081010
  Serious: Yes (Hospitalization, Other)
  Sender: FDA-Public Use
  Company Number: MESA-2008-015

PATIENT
  Age: 42 Year
  Sex: Female

DRUGS (4)
  1. MESALAMINE [Suspect]
     Indication: COLITIS ULCERATIVE
     Dosage: 800 MG TID
  2. BENAZEPRIL HYDROCHLORIDE [Concomitant]
  3. METFORMIN HCL [Concomitant]
  4. CLONAZEPAM [Concomitant]

REACTIONS (12)
  - CARDIAC ENZYMES INCREASED [None]
  - CHEST PAIN [None]
  - DYSPNOEA [None]
  - EJECTION FRACTION DECREASED [None]
  - ELECTROCARDIOGRAM ST SEGMENT ELEVATION [None]
  - HYPOKINESIA [None]
  - LEFT VENTRICULAR DYSFUNCTION [None]
  - MITRAL VALVE INCOMPETENCE [None]
  - MYOCARDITIS [None]
  - PERICARDITIS [None]
  - PULMONARY HYPERTENSION [None]
  - VIRAL MYOCARDITIS [None]
